FAERS Safety Report 9271930 (Version 1)
Quarter: 2013Q2

REPORT INFORMATION
  Report Type: Spontaneous
  Country: US (occurrence: US)
  Receive Date: 20130506
  Receipt Date: 20130506
  Transmission Date: 20140414
  Serious: No
  Sender: FDA-Public Use
  Company Number: US-TARO-2012P1028381

PATIENT
  Age: 55 Year
  Sex: Female
  Weight: 56.7 kg

DRUGS (2)
  1. ETODOLAC [Suspect]
     Indication: NECK PAIN
     Dates: start: 20120502
  2. ETODOLAC [Suspect]
     Dates: start: 20120502

REACTIONS (3)
  - Feeling jittery [Not Recovered/Not Resolved]
  - Headache [Not Recovered/Not Resolved]
  - Dizziness postural [Not Recovered/Not Resolved]
